FAERS Safety Report 6607634-4 (Version None)
Quarter: 2010Q1

REPORT INFORMATION
  Report Type: 
  Country: None (occurrence: None)
  Receive Date: 20100223
  Receipt Date: 20100209
  Transmission Date: 20100710
  Serious: Yes (Hospitalization)
  Sender: FDA-Public Use
  Company Number: DSA_42595_2010

PATIENT
  Sex: Male

DRUGS (3)
  1. CARDIZEM [Suspect]
     Indication: DRUG USE FOR UNKNOWN INDICATION
     Dosage: 240 MG TID ORAL
     Route: 048
     Dates: start: 20090901
  2. COUMADIN [Concomitant]
  3. HEPARIN [Concomitant]

REACTIONS (1)
  - HYPERAESTHESIA [None]
